FAERS Safety Report 24180278 (Version 1)
Quarter: 2024Q3

REPORT INFORMATION
  Report Type: Report from Study
  Country: US (occurrence: None)
  Receive Date: 20240806
  Receipt Date: 20240806
  Transmission Date: 20241017
  Serious: Yes (Hospitalization)
  Sender: ASTRAZENECA
  Company Number: 2024A176798

PATIENT
  Sex: Male
  Weight: 96.2 kg

DRUGS (20)
  1. CALQUENCE [Suspect]
     Active Substance: ACALABRUTINIB
     Indication: Chronic lymphocytic leukaemia
     Route: 048
     Dates: start: 20221031
  2. ACETAMINOPHEN [Concomitant]
     Active Substance: ACETAMINOPHEN
  3. AMOXICILLIN\CLAVULANATE POTASSIUM [Concomitant]
     Active Substance: AMOXICILLIN\CLAVULANATE POTASSIUM
  4. ATORVASTATIN CALCIUM [Concomitant]
     Active Substance: ATORVASTATIN CALCIUM
  5. DESONIDE EXTERNAL [Concomitant]
  6. IMODIUM A-D [Concomitant]
     Active Substance: LOPERAMIDE HYDROCHLORIDE
  7. JANUVIA [Concomitant]
     Active Substance: SITAGLIPTIN PHOSPHATE
  8. KP FERROUS SULFATE [Concomitant]
  9. LANTUS SOLOSTAR [Concomitant]
     Active Substance: INSULIN GLARGINE
  10. LISINOPRIL [Concomitant]
     Active Substance: LISINOPRIL
  11. METHYLPREDNISOLONE [Concomitant]
     Active Substance: METHYLPREDNISOLONE
  12. MUCINEX MAXIMUM [Concomitant]
  13. NOVOLIN R [Concomitant]
     Active Substance: INSULIN HUMAN
  14. OXYBUTYNIN CHLORIDE [Concomitant]
     Active Substance: OXYBUTYNIN CHLORIDE
  15. VALACYCLOVIR HYDROCHLORIDE [Concomitant]
     Active Substance: VALACYCLOVIR HYDROCHLORIDE
  16. PREDNISONE [Concomitant]
     Active Substance: PREDNISONE
  17. VITAMIN B12 [Concomitant]
     Active Substance: CYANOCOBALAMIN
  18. VITAMIN D2 [Concomitant]
     Active Substance: ERGOCALCIFEROL
  19. ZOLOFT [Concomitant]
     Active Substance: SERTRALINE HYDROCHLORIDE
  20. PEPTO-BISMOL [Concomitant]
     Active Substance: BISMUTH SUBSALICYLATE

REACTIONS (3)
  - Fall [Unknown]
  - Brain contusion [Unknown]
  - Feeling abnormal [Unknown]
